FAERS Safety Report 5257554-5 (Version None)
Quarter: 2007Q1

REPORT INFORMATION
  Report Type: 
  Country: None (occurrence: None)
  Receive Date: 20070307
  Receipt Date: 20060914
  Transmission Date: 20070707
  Serious: No
  Sender: FDA-Public Use
  Company Number: US-GLAXOSMITHKLINE-A0620163A

PATIENT
  Age: 70 Year
  Sex: Male

DRUGS (4)
  1. REQUIP [Suspect]
     Indication: RESTLESS LEGS SYNDROME
     Dosage: 1MG PER DAY
     Route: 048
     Dates: start: 20060501
  2. TOPROL-XL [Concomitant]
  3. SIMVASTATIN [Concomitant]
  4. VITAMIN [Concomitant]

REACTIONS (3)
  - DRUG EFFECT DECREASED [None]
  - MIDDLE INSOMNIA [None]
  - THERAPEUTIC RESPONSE DELAYED [None]
